FAERS Safety Report 6393281-9 (Version None)
Quarter: 2009Q4

REPORT INFORMATION
  Report Type: 
  Country: None (occurrence: None)
  Receive Date: 20091008
  Receipt Date: 20090812
  Transmission Date: 20100525
  Serious: No
  Sender: FDA-Public Use
  Company Number: US-BAYER-200930118NA

PATIENT
  Age: 24 Year
  Sex: Female

DRUGS (1)
  1. MIRENA [Suspect]
     Indication: CONTRACEPTION
     Dosage: CONTINUOUS DELIVERY
     Route: 015
     Dates: start: 20061001

REACTIONS (8)
  - HOT FLUSH [None]
  - HYPERHIDROSIS [None]
  - HYPERSOMNIA [None]
  - INSOMNIA [None]
  - IRRITABILITY [None]
  - MENOPAUSAL SYMPTOMS [None]
  - NAUSEA [None]
  - VASODILATATION [None]
